FAERS Safety Report 10967094 (Version 6)
Quarter: 2015Q3

REPORT INFORMATION
  Report Type: Spontaneous
  Country: US (occurrence: US)
  Receive Date: 20150330
  Receipt Date: 20150703
  Transmission Date: 20151125
  Serious: Yes (Other)
  Sender: FDA-Public Use
  Company Number: US-009507513-1503USA013296

PATIENT
  Age: 15 Year
  Sex: Female
  Weight: 71 kg

DRUGS (5)
  1. GRASTEK [Suspect]
     Active Substance: PHLEUM PRATENSE POLLEN
     Dosage: 2800 BAU
     Route: 060
     Dates: start: 20150324, end: 20150324
  2. GRASTEK [Suspect]
     Active Substance: PHLEUM PRATENSE POLLEN
     Indication: HYPERSENSITIVITY
     Dosage: 2800 BAU
     Route: 060
     Dates: start: 20150324, end: 20150324
  3. SINGULAIR [Concomitant]
     Active Substance: MONTELUKAST SODIUM
     Dosage: 10 MG, UNK
     Route: 048
  4. ZOLOFT [Concomitant]
     Active Substance: SERTRALINE HYDROCHLORIDE
     Dosage: 75 MG, UNK
     Route: 048
  5. ZYRTEC [Concomitant]
     Active Substance: CETIRIZINE HYDROCHLORIDE
     Dosage: 10 MG, UNK
     Route: 048

REACTIONS (1)
  - Hypersensitivity [Recovered/Resolved]

NARRATIVE: CASE EVENT DATE: 20150324
